FAERS Safety Report 17100465 (Version 1)
Quarter: 2019Q4

REPORT INFORMATION
  Report Type: Spontaneous
  Country: US (occurrence: US)
  Receive Date: 20191202
  Receipt Date: 20191202
  Transmission Date: 20200122
  Serious: No
  Sender: FDA-Public Use
  Company Number: US-ANTARES PHARMA, INC.-2019-SPO-OT-0068

PATIENT
  Sex: Female

DRUGS (3)
  1. FAMOTIDINE. [Concomitant]
     Active Substance: FAMOTIDINE
  2. HUMIRA [Suspect]
     Active Substance: ADALIMUMAB
     Dosage: 40 MG, QWK
     Dates: start: 20190530, end: 20190530
  3. OTREXUP [Suspect]
     Active Substance: METHOTREXATE
     Indication: JUVENILE PSORIATIC ARTHRITIS
     Dosage: 20 MG/0.4ML, QWK
     Dates: start: 20190530

REACTIONS (1)
  - Erythema [Unknown]
